FAERS Safety Report 8543614-X (Version None)
Quarter: 2012Q3

REPORT INFORMATION
  Report Type: 
  Country: None (occurrence: None)
  Receive Date: 20120727
  Receipt Date: 20120713
  Transmission Date: 20120928
  Serious: Yes (Other)
  Sender: FDA-Public Use
  Company Number: DE-MYLANLABS-2012S1014866

PATIENT
  Age: 53 Year
  Sex: Male

DRUGS (2)
  1. PREDNISOLONE [Suspect]
     Indication: RHEUMATOID ARTHRITIS
     Route: 065
  2. METHOTREXATE [Suspect]
     Indication: RHEUMATOID ARTHRITIS
     Route: 065

REACTIONS (3)
  - SMALL CELL LUNG CANCER STAGE UNSPECIFIED [None]
  - NEPHROTIC SYNDROME [None]
  - GLOMERULONEPHRITIS MEMBRANOUS [None]
